FAERS Safety Report 8280389-6 (Version None)
Quarter: 2012Q2

REPORT INFORMATION
  Report Type: 
  Country: None (occurrence: None)
  Receive Date: 20120412
  Receipt Date: 20120112
  Transmission Date: 20120825
  Serious: No
  Sender: FDA-Public Use
  Company Number: US-ASTRAZENECA-2011SE70938

PATIENT
  Age: 69 Year
  Sex: Female

DRUGS (3)
  1. SYMBICORT [Suspect]
     Dosage: 160/4.5 MCG
     Route: 055
  2. NEXIUM [Suspect]
     Route: 048
  3. CRESTOR [Suspect]
     Route: 048

REACTIONS (9)
  - BRONCHITIS [None]
  - BLOOD GLUCOSE INCREASED [None]
  - CHRONIC SINUSITIS [None]
  - MENTAL IMPAIRMENT [None]
  - WHEEZING [None]
  - BRONCHITIS CHRONIC [None]
  - GASTROOESOPHAGEAL REFLUX DISEASE [None]
  - THROAT IRRITATION [None]
  - DRUG DOSE OMISSION [None]
